FAERS Safety Report 18578483 (Version 3)
Quarter: 2020Q4

REPORT INFORMATION
  Report Type: Spontaneous
  Country: FR (occurrence: FR)
  Receive Date: 20201204
  Receipt Date: 20201221
  Transmission Date: 20210114
  Serious: Yes (Hospitalization, Other)
  Sender: FDA-Public Use
  Company Number: FR-AUROBINDO-AUR-APL-2020-059040

PATIENT
  Age: 73 Year
  Sex: Female

DRUGS (3)
  1. MECOBALAMINA [Concomitant]
     Indication: PERNICIOUS ANAEMIA
     Dosage: UNK, MONTHLY
     Route: 030
  2. TRAMADOL. [Suspect]
     Active Substance: TRAMADOL
     Indication: BACK PAIN
     Dosage: 200 MILLIGRAM, ONCE A DAY
     Route: 065
  3. TRAMADOL. [Suspect]
     Active Substance: TRAMADOL
     Dosage: 50 MILLIGRAM, ONCE A DAY
     Route: 065

REACTIONS (1)
  - Cystoid macular oedema [Recovered/Resolved]
